FAERS Safety Report 8833679 (Version 2)
Quarter: 2013Q3

REPORT INFORMATION
  Report Type: Report from Study
  Country: BR (occurrence: BR)
  Receive Date: 20121010
  Receipt Date: 20130808
  Transmission Date: 20140515
  Serious: Yes (Other)
  Sender: FDA-Public Use
  Company Number: BR-BAYER-2012-104085

PATIENT
  Age: 23 Year
  Sex: Male

DRUGS (2)
  1. BETAFERON [Suspect]
     Indication: MULTIPLE SCLEROSIS
     Dosage: 1 ML, QOD
     Route: 058
     Dates: start: 2010, end: 201208
  2. VITAMIN D [Concomitant]

REACTIONS (9)
  - Influenza like illness [Recovered/Resolved]
  - Pyrexia [Recovered/Resolved]
  - Fatigue [Recovered/Resolved]
  - Sensation of heaviness [Recovered/Resolved]
  - Mobility decreased [Recovered/Resolved]
  - Hyperpyrexia [Recovered/Resolved]
  - Febrile convulsion [Recovered/Resolved]
  - Injection site pain [Recovered/Resolved]
  - Injection site nodule [Recovered/Resolved]
